FAERS Safety Report 5494559-3 (Version None)
Quarter: 2007Q4

REPORT INFORMATION
  Report Type: 
  Country: None (occurrence: None)
  Receive Date: 20071022
  Receipt Date: 20071004
  Transmission Date: 20080405
  Serious: Yes (Life-Threatening)
  Sender: FDA-Public Use
  Company Number: 8024515

PATIENT
  Sex: Male

DRUGS (3)
  1. KEPPRA [Suspect]
     Indication: GRAND MAL CONVULSION
     Dosage: 1250 MG 2/D PO
     Route: 048
  2. KEPPRA [Suspect]
     Indication: COMPLEX PARTIAL SEIZURES
     Dosage: 1000 MG 2/D PO
     Route: 048
  3. KEPPRA [Suspect]
     Indication: GRAND MAL CONVULSION
     Dosage: 500 MG 2/D PO
     Route: 048

REACTIONS (2)
  - DIZZINESS [None]
  - FEELING ABNORMAL [None]
